FAERS Safety Report 19106492 (Version 2)
Quarter: 2021Q2

REPORT INFORMATION
  Report Type: Spontaneous
  Country: CA (occurrence: CA)
  Receive Date: 20210408
  Receipt Date: 20210507
  Transmission Date: 20210717
  Serious: Yes (Life-Threatening, Hospitalization, Other)
  Sender: FDA-Public Use
  Company Number: CA-CELLTRION INC.-2021CA004728

PATIENT

DRUGS (18)
  1. CBD OIL [Concomitant]
     Active Substance: CANNABIDIOL\HERBALS
     Dosage: QHS
  2. THYROID [Concomitant]
     Active Substance: LEVOTHYROXINE\LIOTHYRONINE
     Dosage: THYROID DROPS MINERAL 3X/DAY
  3. INFLECTRA [Suspect]
     Active Substance: INFLIXIMAB-DYYB
     Indication: ARTHRITIS
     Dosage: 200 MG
     Dates: start: 20210218
  4. LAMIVUDINE. [Concomitant]
     Active Substance: LAMIVUDINE
     Dosage: 100 MG, DAILY
  5. VITAMIN B12 [VITAMIN B12 NOS] [Concomitant]
     Active Substance: CYANOCOBALAMIN
     Dosage: 3 DF, DAILY
  6. STRONG BONES [Concomitant]
  7. PROTEINS NOS [Concomitant]
     Active Substance: PROTEIN
     Dosage: UNK, DAILY
  8. PREDNISONE. [Concomitant]
     Active Substance: PREDNISONE
     Indication: ARTHRITIS
     Dosage: 15 MG
     Route: 048
  9. IRON [Concomitant]
     Active Substance: IRON
     Dosage: UNK, DAILY
  10. INFLECTRA [Suspect]
     Active Substance: INFLIXIMAB-DYYB
     Indication: PSORIATIC ARTHROPATHY
     Dosage: 200 MG EVERY 4 WEEKS
     Route: 042
     Dates: start: 20210331, end: 20210331
  11. PREMARIN [Concomitant]
     Active Substance: ESTROGENS, CONJUGATED
  12. MAGNESIUM [Concomitant]
     Active Substance: MAGNESIUM
     Dosage: UNK, DAILY
  13. TRACE MINERALS [Concomitant]
     Active Substance: MINERALS
     Dosage: UNK, DAILY
  14. THYROID [Concomitant]
     Active Substance: LEVOTHYROXINE\LIOTHYRONINE
     Dosage: 1 DF, 3X/DAY
  15. SODIUM [Concomitant]
     Active Substance: SODIUM
     Dosage: SODIUM DROPS 3X/DAY
  16. VITAMIN D [VITAMIN D NOS] [Concomitant]
     Active Substance: VITAMIN D NOS
     Dosage: 2000?4000 IU, DAILY
  17. VITAMINS NOS [Concomitant]
     Active Substance: VITAMINS
     Dosage: UNK, DAILY
  18. GLUTATHIONE [Concomitant]
     Active Substance: GLUTATHIONE
     Dosage: UNK, DAILY

REACTIONS (9)
  - Chest discomfort [Recovered/Resolved]
  - Restlessness [Recovered/Resolved]
  - Chest pain [Recovered/Resolved]
  - Hyperhidrosis [Recovered/Resolved]
  - Dizziness [Recovered/Resolved]
  - Flushing [Recovered/Resolved]
  - Nausea [Recovered/Resolved]
  - Bowel movement irregularity [Recovered/Resolved]
  - Defaecation urgency [Recovered/Resolved]

NARRATIVE: CASE EVENT DATE: 20210331
